FAERS Safety Report 9682863 (Version 3)
Quarter: 2014Q2

REPORT INFORMATION
  Report Type: Spontaneous
  Country: US (occurrence: US)
  Receive Date: 20131112
  Receipt Date: 20140619
  Transmission Date: 20141212
  Serious: Yes (Hospitalization, Disabling, Other)
  Sender: FDA-Public Use
  Company Number: US-BAYER-2013-136172

PATIENT
  Age: 33 Year
  Sex: Female
  Weight: 139 kg

DRUGS (15)
  1. YASMIN [Suspect]
     Indication: CONTRACEPTION
     Dosage: UNK
     Dates: start: 201105, end: 20111102
  2. YASMIN [Suspect]
     Indication: ACNE
  3. YASMIN [Suspect]
     Indication: HYPERTRICHOSIS
  4. YASMIN [Suspect]
     Indication: POLYCYSTIC OVARIES
  5. VYTORIN [Concomitant]
     Dosage: 10-80 MG
     Route: 048
  6. CLINDAMYCIN PHOSPHATE [Concomitant]
     Dosage: 1 %, UNK
     Route: 061
  7. IBUPROFEN [Concomitant]
     Dosage: 800 MG, UNK
     Route: 048
  8. ZOLOFT [Concomitant]
  9. NORCO [Concomitant]
  10. COLACE [Concomitant]
  11. LIORESAL [Concomitant]
  12. LIPITOR [Concomitant]
  13. MICROGESTIN FE [Suspect]
  14. FISH OIL [Concomitant]
     Dosage: DAILY
     Dates: start: 201110
  15. MANNITOL [Concomitant]

REACTIONS (19)
  - Convulsion [None]
  - Cerebrovascular accident [None]
  - Injury [None]
  - Communication disorder [None]
  - Impaired work ability [None]
  - Pain [None]
  - Anxiety [None]
  - Anhedonia [None]
  - Fear of disease [None]
  - Psychological trauma [None]
  - Language disorder [None]
  - Monoparesis [None]
  - Monoplegia [None]
  - Hemiplegia [None]
  - Gait disturbance [None]
  - Aphasia [None]
  - Apraxia [None]
  - Depression [None]
  - Anxiety [None]
